FAERS Safety Report 16124214 (Version 1)
Quarter: 2019Q1

REPORT INFORMATION
  Report Type: Spontaneous
  Country: US (occurrence: US)
  Receive Date: 20190327
  Receipt Date: 20190327
  Transmission Date: 20190418
  Serious: Yes (Other)
  Sender: FDA-Public Use
  Company Number: US-ANIPHARMA-2018-US-019341

PATIENT
  Age: 71 Year
  Sex: Male

DRUGS (4)
  1. ABIRATERONE. [Suspect]
     Active Substance: ABIRATERONE ACETATE
  2. ENZALUTAMIDE [Suspect]
     Active Substance: ENZALUTAMIDE
  3. DOCETAXEL. [Suspect]
     Active Substance: DOCETAXEL
  4. BICALUTAMIDE. [Suspect]
     Active Substance: BICALUTAMIDE
     Indication: PROSTATE CANCER
     Route: 048
     Dates: start: 201511

REACTIONS (2)
  - Prostatic specific antigen increased [Unknown]
  - Disease progression [Unknown]

NARRATIVE: CASE EVENT DATE: 201511
